FAERS Safety Report 8231910-5 (Version None)
Quarter: 2012Q1

REPORT INFORMATION
  Report Type: 
  Country: None (occurrence: None)
  Receive Date: 20120323
  Receipt Date: 20120308
  Transmission Date: 20120608
  Serious: No
  Sender: FDA-Public Use
  Company Number: US-ENDO PHARMACEUTICALS INC.-OPER20120316

PATIENT
  Sex: Female

DRUGS (2)
  1. OPANA ER [Suspect]
     Route: 048
     Dates: start: 20120101
  2. OPANA ER [Suspect]
     Indication: BACK PAIN
     Route: 048
     Dates: start: 20110901, end: 20120101

REACTIONS (1)
  - DRUG EFFECT DECREASED [None]
